FAERS Safety Report 6203200-3 (Version None)
Quarter: 2009Q2

REPORT INFORMATION
  Report Type: 
  Country: None (occurrence: None)
  Receive Date: 20090522
  Receipt Date: 20090522
  Transmission Date: 20091009
  Serious: Yes (Death)
  Sender: FDA-Public Use
  Company Number: None

PATIENT
  Age: 33 Year
  Sex: Male
  Weight: 102.0593 kg

DRUGS (1)
  1. CYMBALTA [Suspect]

REACTIONS (2)
  - COMPLETED SUICIDE [None]
  - MALAISE [None]
